FAERS Safety Report 13753107 (Version 1)
Quarter: 2017Q3

REPORT INFORMATION
  Report Type: Spontaneous
  Country: US (occurrence: US)
  Receive Date: 20170713
  Receipt Date: 20170713
  Transmission Date: 20171127
  Serious: No
  Sender: FDA-Public Use
  Company Number: None

PATIENT
  Age: 27 Year
  Sex: Female

DRUGS (1)
  1. HUMIRA [Suspect]
     Active Substance: ADALIMUMAB
     Indication: CROHN^S DISEASE
     Route: 058
     Dates: start: 20170502, end: 20170713

REACTIONS (4)
  - Therapy cessation [None]
  - Arthralgia [None]
  - Pain [None]
  - Therapy non-responder [None]

NARRATIVE: CASE EVENT DATE: 20170601
